FAERS Safety Report 21068381 (Version 1)
Quarter: 2022Q3

REPORT INFORMATION
  Report Type: Report from Study
  Country: US (occurrence: US)
  Receive Date: 20220712
  Receipt Date: 20220712
  Transmission Date: 20221027
  Serious: Yes (Other)
  Sender: FDA-Public Use
  Company Number: US-ASTELLAS-2022US024573

PATIENT
  Sex: Female

DRUGS (2)
  1. ISAVUCONAZOLE [Interacting]
     Active Substance: ISAVUCONAZOLE
     Indication: Product used for unknown indication
     Dosage: UNK UNK, UNKNOWN FREQ.
     Route: 065
  2. VENCLEXTA [Interacting]
     Active Substance: VENETOCLAX
     Indication: Acute myeloid leukaemia (in remission)
     Dosage: 400 MG, ONCE DAILY (QD FOR 2 WEEKS ON + 3 WEEKS OFF)
     Route: 048
     Dates: start: 20220221

REACTIONS (2)
  - Neutropenia [Unknown]
  - Drug interaction [Unknown]
